FAERS Safety Report 9491498 (Version 2)
Quarter: 2013Q1

REPORT INFORMATION
  Report Type: Not Available
  Country: US (occurrence: US)
  Receive Date: 20121219
  Receipt Date: 20121219
  Transmission Date: 20140127
  Serious: Yes (Hospitalization)
  Sender: FDA-Public Use
  Company Number: US-LUNDBECK-DKLU1059883

PATIENT
  Age: 3 None
  Sex: Female
  Weight: 13.5 kg

DRUGS (5)
  1. CLOBAZAM [Suspect]
     Indication: LENNOX-GASTAUT SYNDROME
     Route: 048
     Dates: start: 20060320
  2. ROBINUL [Concomitant]
     Indication: SALIVARY HYPERSECRETION
     Route: 048
     Dates: start: 20060420, end: 20060525
  3. PREVACID [Concomitant]
     Indication: GASTROOESOPHAGEAL REFLUX DISEASE
     Route: 048
     Dates: start: 20060525
  4. GLYCOLAX [Concomitant]
     Indication: CONSTIPATION
     Route: 048
     Dates: start: 20060525
  5. DEPAKENE [Concomitant]
     Indication: CONVULSION
     Route: 048
     Dates: start: 200211

REACTIONS (1)
  - Pneumonia viral [Recovered/Resolved]
